FAERS Safety Report 25908792 (Version 1)
Quarter: 2025Q4

REPORT INFORMATION
  Report Type: Report from Study
  Country: US (occurrence: US)
  Receive Date: 20251011
  Receipt Date: 20251011
  Transmission Date: 20260118
  Serious: Yes (Other)
  Sender: ABBVIE
  Company Number: US-ABBVIE-5967795

PATIENT
  Sex: Male

DRUGS (2)
  1. HUMIRA [Suspect]
     Active Substance: ADALIMUMAB
     Indication: Ankylosing spondylitis
     Dosage: CITRATE FREE
     Route: 058
     Dates: start: 20220830
  2. HUMIRA [Suspect]
     Active Substance: ADALIMUMAB
     Indication: Eye disorder

REACTIONS (4)
  - Glaucoma [Recovered/Resolved]
  - Vision blurred [Recovering/Resolving]
  - Iritis [Recovering/Resolving]
  - White blood cell count increased [Unknown]
